FAERS Safety Report 4347646-7 (Version None)
Quarter: 2004Q1

REPORT INFORMATION
  Report Type: 
  Country: None (occurrence: None)
  Receive Date: 20040325
  Receipt Date: 20040108
  Transmission Date: 20041129
  Serious: No
  Sender: FDA-Public Use
  Company Number: USA031254483

PATIENT
  Age: 77 Year
  Sex: Female

DRUGS (9)
  1. FORTEO [Suspect]
     Indication: BONE DENSITY DECREASED
     Dates: start: 20031201
  2. GLUCOVANCE [Concomitant]
  3. PLAVIX [Concomitant]
  4. MACRODANTIN [Concomitant]
  5. METOCLOPRAMIDE [Concomitant]
  6. LEVOTHYROXINE [Concomitant]
  7. MECLIZINE [Concomitant]
  8. METOPROLOL [Concomitant]
  9. DIAZEPAM [Concomitant]

REACTIONS (4)
  - ABDOMINAL PAIN UPPER [None]
  - ARTHRALGIA [None]
  - MUSCLE CRAMP [None]
  - NAUSEA [None]
